FAERS Safety Report 18406834 (Version 1)
Quarter: 2020Q4

REPORT INFORMATION
  Report Type: Spontaneous
  Country: US (occurrence: US)
  Receive Date: 20201020
  Receipt Date: 20201020
  Transmission Date: 20210114
  Serious: Yes (Other)
  Sender: FDA-Public Use
  Company Number: US-ASTRAZENECA-2020SF32910

PATIENT
  Age: 27 Year
  Sex: Female

DRUGS (4)
  1. LATUDA [Suspect]
     Active Substance: LURASIDONE HYDROCHLORIDE
     Dosage: 40.0MG UNKNOWN
     Route: 048
  2. SEROQUEL [Suspect]
     Active Substance: QUETIAPINE FUMARATE
     Route: 048
  3. LATUDA [Suspect]
     Active Substance: LURASIDONE HYDROCHLORIDE
     Dosage: 60.0MG UNKNOWN
     Route: 048
  4. TRILEPTAL [Suspect]
     Active Substance: OXCARBAZEPINE
     Route: 065

REACTIONS (7)
  - Feeling abnormal [Unknown]
  - Delusion [Unknown]
  - Hallucination, tactile [Unknown]
  - Depression [Unknown]
  - Treatment noncompliance [Unknown]
  - Mania [Recovered/Resolved]
  - Sense of oppression [Unknown]
